FAERS Safety Report 9651027 (Version 1)
Quarter: 2013Q4

REPORT INFORMATION
  Report Type: Report from Study
  Country: AU (occurrence: AU)
  Receive Date: 20131029
  Receipt Date: 20131029
  Transmission Date: 20140711
  Serious: Yes (Hospitalization)
  Sender: FDA-Public Use
  Company Number: PHHY2013AU120499

PATIENT
  Age: 27 Year
  Sex: Male

DRUGS (2)
  1. CLOZARIL [Suspect]
     Dosage: 550 MG, UNK
     Dates: start: 20050215, end: 20131003
  2. STATIN//ATORVASTATIN CALCIUM [Concomitant]
     Dosage: UNK UKN, UNK

REACTIONS (3)
  - Mental impairment [Unknown]
  - Blood creatine phosphokinase increased [Unknown]
  - Sedation [Unknown]
